FAERS Safety Report 10688723 (Version 1)
Quarter: 2015Q1

REPORT INFORMATION
  Report Type: Spontaneous
  Country: ES (occurrence: ES)
  Receive Date: 20150102
  Receipt Date: 20150102
  Transmission Date: 20150720
  Serious: Yes (Other)
  Sender: FDA-Public Use
  Company Number: ES-BIAL, PORTELA + CA S.A.-BIAL-02751

PATIENT
  Age: 49 Year
  Sex: Female

DRUGS (1)
  1. ZEBINIX (ESLICARBAZEPINE ACETATE) [Suspect]
     Active Substance: ESLICARBAZEPINE ACETATE
     Indication: PAIN
     Dosage: 1600 MG, 2X / DAY
     Route: 048
     Dates: start: 20141123, end: 20141123

REACTIONS (3)
  - Overdose [None]
  - Bronchospasm [Recovered/Resolved]
  - Product use issue [None]

NARRATIVE: CASE EVENT DATE: 20141123
